FAERS Safety Report 8351861-5 (Version None)
Quarter: 2012Q2

REPORT INFORMATION
  Report Type: 
  Country: None (occurrence: None)
  Receive Date: 20120510
  Receipt Date: 20120510
  Transmission Date: 20120825
  Serious: No
  Sender: FDA-Public Use
  Company Number: None

PATIENT

DRUGS (1)
  1. RHOPHYLAC [Suspect]
     Indication: RHESUS ANTIBODIES POSITIVE
     Dosage: 1500 IU ONCE IV
     Route: 042

REACTIONS (1)
  - SYRINGE ISSUE [None]
